FAERS Safety Report 7237586-8 (Version None)
Quarter: 2011Q1

REPORT INFORMATION
  Report Type: 
  Country: None (occurrence: None)
  Receive Date: 20110121
  Receipt Date: 20110111
  Transmission Date: 20110831
  Serious: Yes (Hospitalization)
  Sender: FDA-Public Use
  Company Number: US-JNJFOC-20110102926

PATIENT
  Sex: Female
  Weight: 54 kg

DRUGS (5)
  1. INFLIXIMAB, RECOMBINANT [Suspect]
     Route: 042
  2. INFLIXIMAB, RECOMBINANT [Suspect]
     Indication: CROHN'S DISEASE
     Route: 042
  3. INFLIXIMAB, RECOMBINANT [Suspect]
     Indication: ILEAL STENOSIS
     Route: 042
  4. INFLIXIMAB, RECOMBINANT [Suspect]
     Route: 042
  5. METRONIDAZOLE [Concomitant]

REACTIONS (5)
  - ILEOSTOMY CLOSURE [None]
  - OBSTRUCTION [None]
  - CHOLELITHIASIS [None]
  - BILIARY COLIC [None]
  - ABDOMINAL PAIN [None]
